FAERS Safety Report 9015730 (Version 1)
Quarter: 2013Q1

REPORT INFORMATION
  Report Type: Spontaneous
  Country: DE (occurrence: None)
  Receive Date: 20130102
  Receipt Date: 20130102
  Transmission Date: 20140127
  Serious: Yes (Other)
  Sender: FDA-Public Use
  Company Number: PRED20120077

PATIENT
  Age: 85 Year
  Sex: Female

DRUGS (1)
  1. PREDNISONE TABLETS [Suspect]
     Indication: TEMPORAL ARTERITIS
     Route: 048
     Dates: start: 1998, end: 2006

REACTIONS (3)
  - Panic disorder without agoraphobia [None]
  - Ross syndrome [None]
  - Condition aggravated [None]
